FAERS Safety Report 12651139 (Version 1)
Quarter: 2016Q3

REPORT INFORMATION
  Report Type: Spontaneous
  Country: US (occurrence: US)
  Receive Date: 20160815
  Receipt Date: 20160815
  Transmission Date: 20161109
  Serious: No
  Sender: FDA-Public Use
  Company Number: US-JAZZ-2016-US-005174

PATIENT
  Age: 22 Year
  Sex: Female

DRUGS (20)
  1. COLCRYS [Concomitant]
     Active Substance: COLCHICINE
  2. PREDNISONE. [Concomitant]
     Active Substance: PREDNISONE
  3. TYLENOL EXTRA STRENGTH [Concomitant]
     Active Substance: ACETAMINOPHEN
  4. XYREM [Suspect]
     Active Substance: SODIUM OXYBATE
     Dosage: 4.5 G, QD
     Route: 048
     Dates: start: 2016, end: 2016
  5. SUDAFED [Concomitant]
     Active Substance: PSEUDOEPHEDRINE HYDROCHLORIDE
  6. GARLIC. [Concomitant]
     Active Substance: GARLIC
  7. METAXALONE. [Concomitant]
     Active Substance: METAXALONE
  8. FLUTICASONE PROPIONATE. [Concomitant]
     Active Substance: FLUTICASONE PROPIONATE
  9. TEA [Concomitant]
     Active Substance: TEA LEAF
  10. XYREM [Suspect]
     Active Substance: SODIUM OXYBATE
     Dosage: 3 G, BID
     Route: 048
     Dates: start: 201603, end: 2016
  11. AFRIN [Concomitant]
     Active Substance: OXYMETAZOLINE
  12. CAYENNE [Concomitant]
  13. XYREM [Suspect]
     Active Substance: SODIUM OXYBATE
     Indication: NARCOLEPSY
     Dosage: 2.25 G, BID
     Route: 048
     Dates: start: 201602, end: 201603
  14. GLUTAMINE [Concomitant]
     Active Substance: GLUTAMINE
  15. MULTIVITAMINS [Concomitant]
     Active Substance: VITAMINS
  16. XYREM [Suspect]
     Active Substance: SODIUM OXYBATE
     Dosage: 3.5 G UPON PHYSICIAN^S RECOMMENDATION
     Route: 048
     Dates: start: 2016
  17. ADDERALL [Concomitant]
     Active Substance: AMPHETAMINE ASPARTATE\AMPHETAMINE SULFATE\DEXTROAMPHETAMINE SACCHARATE\DEXTROAMPHETAMINE SULFATE
  18. CHROMIUM [Concomitant]
     Active Substance: CHROMIC CHLORIDE\CHROMIUM
  19. IBUPROFEN. [Concomitant]
     Active Substance: IBUPROFEN
  20. MICROGESTIN FE [Concomitant]
     Active Substance: ETHINYL ESTRADIOL\FERROUS FUMARATE\NORETHINDRONE ACETATE

REACTIONS (4)
  - Nausea [Unknown]
  - Vomiting [Unknown]
  - Malaise [Not Recovered/Not Resolved]
  - Unevaluable event [Not Recovered/Not Resolved]

NARRATIVE: CASE EVENT DATE: 201603
